FAERS Safety Report 5767219-9 (Version None)
Quarter: 2008Q2

REPORT INFORMATION
  Report Type: 
  Country: None (occurrence: None)
  Receive Date: 20080611
  Receipt Date: 20080611
  Transmission Date: 20081010
  Serious: Yes (Death)
  Sender: FDA-Public Use
  Company Number: None

PATIENT

DRUGS (1)
  1. HERCULEX PRE-PERFORMANCE [Suspect]
     Dates: start: 20070809, end: 20070820

REACTIONS (13)
  - ACTIVITIES OF DAILY LIVING IMPAIRED [None]
  - APPLICATION SITE IRRITATION [None]
  - ARTERIOSCLEROSIS [None]
  - CARDIAC FAILURE CONGESTIVE [None]
  - CARDIOVASCULAR DISORDER [None]
  - GENERAL PHYSICAL HEALTH DETERIORATION [None]
  - HALLUCINATION [None]
  - HYPERTENSION [None]
  - INCOHERENT [None]
  - PENILE BLISTER [None]
  - REFUSAL OF TREATMENT BY PATIENT [None]
  - STRESS [None]
  - TESTICULAR SWELLING [None]
